FAERS Safety Report 19715685 (Version 2)
Quarter: 2021Q4

REPORT INFORMATION
  Report Type: Report from Study
  Country: JP (occurrence: JP)
  Receive Date: 20210818
  Receipt Date: 20211008
  Transmission Date: 20220303
  Serious: Yes (Hospitalization)
  Sender: FDA-Public Use
  Company Number: JP-RECORDATI RARE DISEASE INC.-2020004804

PATIENT
  Age: 1 Month
  Sex: Male
  Weight: .4 kg

DRUGS (13)
  1. NEOPROFEN [Suspect]
     Active Substance: IBUPROFEN LYSINE
     Indication: Patent ductus arteriosus
     Dosage: 4 MILLIGRAM, QD
     Route: 042
     Dates: start: 20190928, end: 20190928
  2. NEOPROFEN [Suspect]
     Active Substance: IBUPROFEN LYSINE
     Dosage: 4 MILLIGRAM, QD
     Route: 042
     Dates: start: 20191002, end: 20191002
  3. NEOPROFEN [Suspect]
     Active Substance: IBUPROFEN LYSINE
     Dosage: 2 MILLIGRAM, QD
     Route: 042
     Dates: start: 20191003, end: 20191003
  4. NEOPROFEN [Suspect]
     Active Substance: IBUPROFEN LYSINE
     Dosage: 2 MILLIGRAM, QD
     Route: 042
     Dates: start: 20191005, end: 20191005
  5. AMIKACIN [Concomitant]
     Active Substance: AMIKACIN
     Indication: Intrauterine infection
     Dosage: UNK, UNK
     Route: 042
     Dates: start: 20190924, end: 20190928
  6. AMPICILLIN SODIUM [Concomitant]
     Active Substance: AMPICILLIN SODIUM
     Indication: Intrauterine infection
     Dosage: UNK, UNK
     Route: 042
     Dates: start: 20190924, end: 20190929
  7. MICAFUNGIN SODIUM [Concomitant]
     Active Substance: MICAFUNGIN SODIUM
     Indication: Infection prophylaxis
     Dosage: UNK, UNK
     Route: 042
     Dates: start: 20190924, end: 20191019
  8. DOBUTAMINE HYDROCHLORIDE [Concomitant]
     Active Substance: DOBUTAMINE HYDROCHLORIDE
     Indication: Hypotension
     Dosage: UNK, UNK
     Route: 042
     Dates: start: 20190924, end: 20190928
  9. SOYBEAN OIL [Concomitant]
     Active Substance: SOYBEAN OIL
     Indication: Nutritional supplementation
     Dosage: UNK, UNK
     Route: 042
     Dates: start: 20190930, end: 20191031
  10. FUROSEMIDE [Concomitant]
     Active Substance: FUROSEMIDE
     Indication: Patent ductus arteriosus
     Dosage: UNK, UNK
     Route: 042
     Dates: start: 20191002, end: 20191002
  11. FLORID D [Concomitant]
     Indication: Infection prophylaxis
     Dosage: UNK, UNK
     Route: 048
     Dates: start: 20190924, end: 20191024
  12. FLUTICASONE PROPIONATE [Concomitant]
     Active Substance: FLUTICASONE PROPIONATE
     Indication: Lung disorder
     Dosage: UNK, UNK
     Dates: start: 20190928, end: 20191113
  13. MENATETRENONE [Concomitant]
     Active Substance: MENATETRENONE
     Indication: Vitamin supplementation
     Dosage: UNK
     Route: 042

REACTIONS (2)
  - Lung disorder [Recovering/Resolving]
  - Inguinal hernia [Not Recovered/Not Resolved]

NARRATIVE: CASE EVENT DATE: 20191119
